FAERS Safety Report 16644394 (Version 1)
Quarter: 2019Q3

REPORT INFORMATION
  Report Type: Spontaneous
  Country: FR (occurrence: FR)
  Receive Date: 20190729
  Receipt Date: 20190729
  Transmission Date: 20191004
  Serious: Yes (Hospitalization, Other)
  Sender: FDA-Public Use
  Company Number: FR-BAYER-2019-100961

PATIENT
  Age: 45 Year
  Sex: Female

DRUGS (2)
  1. MIRENA [Suspect]
     Active Substance: LEVONORGESTREL
  2. MIRENA [Suspect]
     Active Substance: LEVONORGESTREL
     Dosage: 20 MCG/24HR, CONT
     Route: 015
     Dates: start: 20170512, end: 20190416

REACTIONS (6)
  - Hyperthermia [None]
  - Abscess intestinal [Recovering/Resolving]
  - Adenomyosis [None]
  - Actinomycosis [Recovering/Resolving]
  - Pelvic pain [None]
  - Urinary retention postoperative [None]

NARRATIVE: CASE EVENT DATE: 20190412
